FAERS Safety Report 10029425 (Version 2)
Quarter: 2014Q2

REPORT INFORMATION
  Report Type: Spontaneous
  Country: US (occurrence: US)
  Receive Date: 20140322
  Receipt Date: 20140409
  Transmission Date: 20141212
  Serious: Yes (Other)
  Sender: FDA-Public Use
  Company Number: PHEH2014US005636

PATIENT
  Sex: Male

DRUGS (13)
  1. DIOVAN [Suspect]
  2. LOSARTAN [Suspect]
     Dosage: UNK UKN, UNK
     Dates: start: 2010
  3. CLONIDINE [Concomitant]
     Dosage: 4 DF (0.8 MG), QD
  4. CARDIZEM [Concomitant]
     Dosage: UNK UKN, UNK
  5. TORSEMIDE [Concomitant]
  6. TAMSULOSIN [Concomitant]
     Dosage: UNK UKN, UNK
  7. VENTOLIN                           /00942701/ [Concomitant]
     Dosage: UNK UKN, UNK
  8. ADEVIR [Concomitant]
     Dosage: UNK UKN, UNK
  9. QVAR [Concomitant]
     Dosage: UNK UKN, UNK
  10. AVODART [Concomitant]
     Dosage: UNK UKN, UNK
  11. PROTONIX [Concomitant]
     Dosage: UNK UKN, UNK
  12. HUMALOG [Concomitant]
     Dosage: 2 DF, QD
  13. HUMULIN [Concomitant]
     Dosage: 2 DF, QD

REACTIONS (4)
  - Diabetes mellitus [Unknown]
  - Asthma [Unknown]
  - Urticaria [Unknown]
  - Drug intolerance [Unknown]
